FAERS Safety Report 25594718 (Version 4)
Quarter: 2025Q4

REPORT INFORMATION
  Report Type: Report from Study
  Country: JP (occurrence: JP)
  Receive Date: 20250723
  Receipt Date: 20251117
  Transmission Date: 20260117
  Serious: Yes (Hospitalization, Other)
  Sender: INSMED
  Company Number: JP-INSMED, INC.-2023-00710-JP

PATIENT
  Age: 78 Year
  Sex: Female
  Weight: 47.4 kg

DRUGS (10)
  1. ARIKAYCE [Suspect]
     Active Substance: AMIKACIN
     Indication: Mycobacterium avium complex infection
     Dosage: 590 MILLIGRAM, QD
     Route: 055
     Dates: start: 20220524, end: 20230405
  2. SITAFLOXACIN [Concomitant]
     Active Substance: SITAFLOXACIN
     Indication: Mycobacterium avium complex infection
     Dosage: 100 MILLIGRAM/DAY
     Route: 065
     Dates: start: 20220816, end: 20221017
  3. CLARITHROMYCIN [Concomitant]
     Active Substance: CLARITHROMYCIN
     Indication: Mycobacterium avium complex infection
     Dosage: 800 MILLIGRAM/DAY
     Route: 065
     Dates: start: 20220510, end: 20220815
  4. RIFAMPIN [Concomitant]
     Active Substance: RIFAMPIN
     Indication: Mycobacterium avium complex infection
     Dosage: 450 MILLIGRAM/DAY
     Route: 065
     Dates: start: 20200120, end: 20230104
  5. ETHAMBUTOL HYDROCHLORIDE [Concomitant]
     Active Substance: ETHAMBUTOL HYDROCHLORIDE
     Indication: Mycobacterium avium complex infection
     Dosage: 625 MILLIGRAM/DAY
     Route: 065
     Dates: start: 20200120, end: 20230104
  6. MIYA-BM [Concomitant]
     Active Substance: CLOSTRIDIUM BUTYRICUM SPORES STRAIN M-55
     Indication: Prophylaxis
     Dosage: 6 DOSAGE FORM,/DAY
     Route: 048
     Dates: start: 20220816, end: 20221109
  7. MAGNESIUM OXIDE [Concomitant]
     Active Substance: MAGNESIUM OXIDE
     Indication: Prophylaxis
     Dosage: 990 MILLIGRAM/DAY
     Route: 048
     Dates: start: 20221110
  8. TU-100 [Concomitant]
     Active Substance: ASIAN GINSENG\GINGER\ZANTHOXYLUM PIPERITUM FRUIT PULP
     Indication: Prophylaxis
     Dosage: 15 GRAM/DAY
     Route: 048
     Dates: start: 20221111
  9. PANTETHINE [Concomitant]
     Active Substance: PANTETHINE
     Indication: Prophylaxis
     Dosage: 600 MILLIGRAM/DAY
     Route: 048
     Dates: start: 20221122
  10. FURSULTIAMINE [Concomitant]
     Active Substance: FURSULTIAMINE
     Indication: Prophylaxis
     Dosage: 75 MILLIGRAM/DAY
     Route: 048
     Dates: start: 20221122

REACTIONS (4)
  - Constipation [Recovered/Resolved]
  - Pulmonary toxicity [Recovered/Resolved]
  - COVID-19 [Recovered/Resolved]
  - Diarrhoea [Recovered/Resolved]

NARRATIVE: CASE EVENT DATE: 20221001
